FAERS Safety Report 10204599 (Version 1)
Quarter: 2014Q2

REPORT INFORMATION
  Report Type: Spontaneous
  Country: US (occurrence: US)
  Receive Date: 20140529
  Receipt Date: 20140529
  Transmission Date: 20141212
  Serious: No
  Sender: FDA-Public Use
  Company Number: US-B.I. PHARMACEUTICALS,INC./RIDGEFIELD-2014-BI-22170BP

PATIENT
  Age: 62 Year
  Sex: Female
  Weight: 45 kg

DRUGS (3)
  1. SPIRIVA [Suspect]
     Indication: PULMONARY FIBROSIS
     Dosage: 18 MCG
     Route: 055
     Dates: start: 201306
  2. SPIRIVA [Suspect]
     Indication: LUNG INFECTION
     Dosage: 18 MCG
     Route: 055
     Dates: start: 20140101
  3. XOPENEX [Concomitant]
     Indication: LUNG INFECTION
     Route: 055

REACTIONS (2)
  - Urticaria [Recovered/Resolved]
  - Off label use [Unknown]
